FAERS Safety Report 15360021 (Version 4)
Quarter: 2019Q2

REPORT INFORMATION
  Report Type: Spontaneous
  Country: LK (occurrence: LK)
  Receive Date: 20180907
  Receipt Date: 20190409
  Transmission Date: 20190711
  Serious: Yes (Hospitalization, Other)
  Sender: FDA-Public Use
  Company Number: LK-CONCORDIA PHARMACEUTICALS INC.-E2B_00016545

PATIENT
  Age: 30 Year
  Sex: Male

DRUGS (5)
  1. PREDNISOLONE. [Suspect]
     Active Substance: PREDNISOLONE
     Dosage: TAPERED
  2. PREDNISOLONE. [Suspect]
     Active Substance: PREDNISOLONE
     Dates: end: 20161231
  3. PREDNISOLONE. [Suspect]
     Active Substance: PREDNISOLONE
     Dates: start: 20160710
  4. PRAZOSIN. [Concomitant]
     Active Substance: PRAZOSIN
  5. BISOPROLOL [Concomitant]
     Active Substance: BISOPROLOL

REACTIONS (12)
  - Splenic abscess [Recovering/Resolving]
  - Immunodeficiency [Recovered/Resolved]
  - Granuloma [Recovering/Resolving]
  - Facial paralysis [Recovered/Resolved]
  - Disseminated tuberculosis [Recovering/Resolving]
  - Spleen tuberculosis [Recovering/Resolving]
  - Aspergillus infection [Recovering/Resolving]
  - Embolism [Recovering/Resolving]
  - Myelodysplastic syndrome [Recovering/Resolving]
  - Cytomegalovirus infection [Recovered/Resolved]
  - Pneumonia [Recovered/Resolved]
  - Peripheral ischaemia [Recovering/Resolving]

NARRATIVE: CASE EVENT DATE: 201609
